FAERS Safety Report 7079100-6 (Version None)
Quarter: 2010Q4

REPORT INFORMATION
  Report Type: 
  Country: None (occurrence: None)
  Receive Date: 20101102
  Receipt Date: 20101028
  Transmission Date: 20110411
  Serious: Yes (Death, Hospitalization, Congenital Anomaly)
  Sender: FDA-Public Use
  Company Number: A0679815A

PATIENT
  Sex: Male
  Weight: 2.7 kg

DRUGS (6)
  1. PAXIL [Suspect]
     Indication: DEPRESSION
     Dosage: 20MG PER DAY
     Dates: end: 20060101
  2. PRENATAL VITAMINS [Concomitant]
  3. COMPAZINE [Concomitant]
  4. REGLAN [Concomitant]
  5. ZOFRAN [Concomitant]
  6. PEPCID [Concomitant]

REACTIONS (8)
  - ATRIAL SEPTAL DEFECT [None]
  - CONGENITAL PULMONARY ARTERY ANOMALY [None]
  - DEATH [None]
  - DOUBLE OUTLET RIGHT VENTRICLE [None]
  - DRUG EXPOSURE DURING PREGNANCY [None]
  - HEART DISEASE CONGENITAL [None]
  - UNIVENTRICULAR HEART [None]
  - VENTRICULAR SEPTAL DEFECT [None]
